FAERS Safety Report 15295558 (Version 1)
Quarter: 2018Q4

REPORT INFORMATION
  Report Type: Spontaneous
  Country: FR (occurrence: FR)
  Receive Date: 20180820
  Receipt Date: 20180820
  Transmission Date: 20190204
  Serious: Yes (Other)
  Sender: FDA-Public Use
  Company Number: PHHY2018FR074277

PATIENT
  Age: 64 Year
  Sex: Female
  Weight: 60 kg

DRUGS (4)
  1. LIORESAL [Concomitant]
     Active Substance: BACLOFEN
     Indication: MUSCLE SPASTICITY
     Dosage: 6 ?G/L, QD
     Route: 065
  2. METHOTREXATE. [Suspect]
     Active Substance: METHOTREXATE
     Indication: PROGRESSIVE MULTIPLE SCLEROSIS
     Dosage: 7.5 MG, QW (2.5 MG X 3)
     Route: 065
     Dates: end: 20180209
  3. VESICARE [Concomitant]
     Active Substance: SOLIFENACIN SUCCINATE
     Indication: BLADDER SPHINCTER ATONY
     Dosage: 5 MG, QD
     Route: 065
  4. QOSMET [Suspect]
     Active Substance: METFORMIN HYDROCHLORIDE\SITAGLIPTIN PHOSPHATE
     Indication: PROGRESSIVE MULTIPLE SCLEROSIS
     Dosage: 300 MG, QD (100 MG X 3)
     Route: 048
     Dates: start: 201711

REACTIONS (3)
  - Cholestasis [Recovered/Resolved]
  - Bile duct stone [Recovered/Resolved]
  - Cell death [Recovered/Resolved]

NARRATIVE: CASE EVENT DATE: 201802
